FAERS Safety Report 4397469-8 (Version None)
Quarter: 2004Q2

REPORT INFORMATION
  Report Type: 
  Country: None (occurrence: None)
  Receive Date: 20040621
  Receipt Date: 20031230
  Transmission Date: 20050107
  Serious: Yes (Other)
  Sender: FDA-Public Use
  Company Number: USA-2003-0012320

PATIENT
  Age: 21 Year
  Sex: Male

DRUGS (3)
  1. OXYCONTIN [Suspect]
     Dosage: UNK MG, UNK; UNKNOWN
     Route: 065
  2. MORPHINE SULFATE [Suspect]
     Dosage: UNK UNK, UNK; UNKNOWN
     Route: 065
  3. HEROIN (DIAMORPHINE) [Suspect]
     Dosage: UNK UNK, UNK; UNKNOWN
     Route: 065

REACTIONS (1)
  - DRUG ABUSER [None]
